FAERS Safety Report 8081380-5 (Version None)
Quarter: 2012Q1

REPORT INFORMATION
  Report Type: 
  Country: None (occurrence: None)
  Receive Date: 20120130
  Receipt Date: 20120124
  Transmission Date: 20120608
  Serious: Yes (Hospitalization, Other)
  Sender: FDA-Public Use
  Company Number: US-ROXANE LABORATORIES, INC.-2012-RO-00535RO

PATIENT
  Age: 59 Year
  Sex: Male

DRUGS (2)
  1. SPRYCEL [Suspect]
     Indication: ACUTE LYMPHOCYTIC LEUKAEMIA
     Dosage: 140 MG
     Route: 048
     Dates: start: 20111203, end: 20111206
  2. DEXAMETHASONE [Suspect]
     Indication: ACUTE LYMPHOCYTIC LEUKAEMIA
     Dates: start: 20111203, end: 20111209

REACTIONS (5)
  - BLOOD BILIRUBIN INCREASED [None]
  - ESCHERICHIA SEPSIS [None]
  - RENAL FAILURE ACUTE [None]
  - HYPERGLYCAEMIA [None]
  - BLOOD CREATININE INCREASED [None]
